FAERS Safety Report 6774031-0 (Version None)
Quarter: 2010Q2

REPORT INFORMATION
  Report Type: 
  Country: None (occurrence: None)
  Receive Date: 20100616
  Receipt Date: 20100616
  Transmission Date: 20101027
  Serious: Yes (Hospitalization)
  Sender: FDA-Public Use
  Company Number: None

PATIENT
  Age: 40 Year
  Sex: Female

DRUGS (3)
  1. ADVIL [Suspect]
     Indication: PAIN
     Dosage: TWICE PO
     Route: 048
  2. BETALOC [Concomitant]
  3. CALCIUM SUPPLEMENTS [Concomitant]

REACTIONS (1)
  - GASTRIC ULCER HAEMORRHAGE [None]
